FAERS Safety Report 5480006-4 (Version None)
Quarter: 2007Q4

REPORT INFORMATION
  Report Type: 
  Country: None (occurrence: None)
  Receive Date: 20071008
  Receipt Date: 20070927
  Transmission Date: 20080405
  Serious: Yes (Disabling)
  Sender: FDA-Public Use
  Company Number: DE-PFIZER INC-2007067084

PATIENT
  Sex: Male
  Weight: 82 kg

DRUGS (4)
  1. SORTIS [Suspect]
     Indication: CARDIOVASCULAR EVENT PROPHYLAXIS
     Dosage: DAILY DOSE:40MG
     Route: 048
     Dates: start: 20050601, end: 20070801
  2. RAMIPRIL [Concomitant]
     Route: 048
  3. ASPIRIN [Concomitant]
     Route: 048
  4. PLAVIX [Concomitant]
     Route: 048

REACTIONS (5)
  - ANXIETY DISORDER [None]
  - NOCTURNAL DYSPNOEA [None]
  - PANIC ATTACK [None]
  - RESTLESSNESS [None]
  - SLEEP DISORDER [None]
